FAERS Safety Report 24196220 (Version 1)
Quarter: 2024Q3

REPORT INFORMATION
  Report Type: Spontaneous
  Country: US (occurrence: US)
  Receive Date: 20240809
  Receipt Date: 20240809
  Transmission Date: 20241016
  Serious: Yes (Hospitalization, Other)
  Sender: VISTAPHARM
  Company Number: US-VISTAPHARM-2024-US-042537

PATIENT
  Age: 36 Year
  Sex: Male

DRUGS (1)
  1. METHADONE HYDROCHLORIDE [Suspect]
     Active Substance: METHADONE HYDROCHLORIDE
     Indication: Drug use disorder

REACTIONS (1)
  - Acute myocardial infarction [Recovered/Resolved]
